FAERS Safety Report 9851038 (Version 1)
Quarter: 2014Q1

REPORT INFORMATION
  Report Type: Spontaneous
  Country: US (occurrence: US)
  Receive Date: 20140128
  Receipt Date: 20140128
  Transmission Date: 20141002
  Serious: No
  Sender: FDA-Public Use
  Company Number: US-DYAX CORP.-2013DX000021

PATIENT
  Age: 25 Year
  Sex: Female
  Weight: 68.1 kg

DRUGS (6)
  1. KALBITOR [Suspect]
     Indication: HEREDITARY ANGIOEDEMA
     Route: 058
     Dates: start: 20130122, end: 20130122
  2. KALBITOR [Suspect]
     Route: 058
     Dates: start: 20130123, end: 20130123
  3. NEXIUM [Concomitant]
     Indication: GASTROOESOPHAGEAL REFLUX DISEASE
     Route: 048
  4. LIALDA [Concomitant]
     Indication: CROHN^S DISEASE
     Route: 048
  5. LOSEASONIQUE [Concomitant]
     Indication: CONTRACEPTION
     Route: 048
  6. BERINERT [Concomitant]
     Indication: HEREDITARY ANGIOEDEMA
     Dosage: DRUG ROUTE: INTRAVENOUS
     Route: 042

REACTIONS (3)
  - Rash [Recovered/Resolved]
  - Vulvovaginal burning sensation [Recovered/Resolved]
  - Nausea [Recovered/Resolved]
